FAERS Safety Report 20886310 (Version 2)
Quarter: 2022Q4

REPORT INFORMATION
  Report Type: Spontaneous
  Country: HU (occurrence: HU)
  Receive Date: 20220527
  Receipt Date: 20221202
  Transmission Date: 20230113
  Serious: Yes (Other)
  Sender: FDA-Public Use
  Company Number: HU-002147023-NVSC2022HU110494

PATIENT
  Age: 75 Year
  Sex: Female

DRUGS (21)
  1. TRAMADOL [Suspect]
     Active Substance: TRAMADOL
     Indication: Pain
     Dosage: UNK
     Route: 065
     Dates: start: 201504
  2. TRAMADOL [Suspect]
     Active Substance: TRAMADOL
     Indication: Back pain
  3. FULVESTRANT [Suspect]
     Active Substance: FULVESTRANT
     Indication: Breast cancer
     Dosage: UNK
     Route: 065
     Dates: start: 20201125
  4. LETROZOLE [Suspect]
     Active Substance: LETROZOLE
     Indication: Adenocarcinoma
     Dosage: UNK
     Route: 065
     Dates: start: 2008, end: 201303
  5. LETROZOLE [Suspect]
     Active Substance: LETROZOLE
     Indication: Intraductal proliferative breast lesion
  6. ZOLEDRONIC ACID [Suspect]
     Active Substance: ZOLEDRONIC ACID
     Indication: Adenocarcinoma
     Dosage: 4 MG, QMO
     Route: 065
     Dates: start: 201504
  7. ANASTROZOLE [Suspect]
     Active Substance: ANASTROZOLE
     Indication: Adenocarcinoma
     Dosage: 1 MG, QD
     Route: 065
     Dates: start: 201504
  8. DOCETAXEL [Suspect]
     Active Substance: DOCETAXEL
     Indication: Adenocarcinoma
     Dosage: UNK
     Route: 065
     Dates: start: 2007, end: 200802
  9. KISQALI [Interacting]
     Active Substance: RIBOCICLIB
     Indication: Breast cancer
     Dosage: 600 MG
     Route: 065
     Dates: start: 20201125
  10. KISQALI [Interacting]
     Active Substance: RIBOCICLIB
     Dosage: 400 MG
     Route: 065
     Dates: start: 202012
  11. CYCLOPHOSPHAMIDE [Suspect]
     Active Substance: CYCLOPHOSPHAMIDE
     Indication: Adenocarcinoma
     Dosage: UNK
     Route: 065
     Dates: start: 2007, end: 200802
  12. DENOSUMAB [Interacting]
     Active Substance: DENOSUMAB
     Indication: Breast cancer
     Dosage: UNK
     Route: 065
     Dates: start: 20201110
  13. DOXORUBICIN [Suspect]
     Active Substance: DOXORUBICIN
     Indication: Adenocarcinoma
     Dosage: UNK
     Route: 065
     Dates: start: 2007, end: 200802
  14. PACLITAXEL [Suspect]
     Active Substance: PACLITAXEL
     Indication: Breast cancer
     Dosage: UNK
     Route: 065
     Dates: start: 202009
  15. PACLITAXEL [Suspect]
     Active Substance: PACLITAXEL
     Indication: Intraductal proliferative breast lesion
  16. XGEVA [Concomitant]
     Active Substance: DENOSUMAB
     Indication: Breast cancer
     Dosage: UNK
     Route: 065
     Dates: start: 202012
  17. XGEVA [Concomitant]
     Active Substance: DENOSUMAB
     Indication: Intraductal proliferative breast lesion
     Dosage: UNK
     Route: 065
  18. TRASTUZUMAB [Concomitant]
     Active Substance: TRASTUZUMAB
     Indication: Adenocarcinoma
     Dosage: UNK
     Route: 065
  19. PERJETA [Concomitant]
     Active Substance: PERTUZUMAB
     Indication: Breast cancer
     Dosage: UNK
     Route: 065
     Dates: start: 202009
  20. HERCEPTIN [Concomitant]
     Active Substance: TRASTUZUMAB
     Indication: Breast cancer
     Dosage: UNK
     Route: 065
  21. HERCEPTIN [Concomitant]
     Active Substance: TRASTUZUMAB
     Indication: Intraductal proliferative breast lesion

REACTIONS (19)
  - Breast cancer [Unknown]
  - Metastasis [Recovered/Resolved]
  - Thrombocytopenia [Unknown]
  - Osteomyelitis [Unknown]
  - Necrosis [Unknown]
  - Electrocardiogram QT prolonged [Recovered/Resolved]
  - Metastases to bone marrow [Unknown]
  - Metastases to spine [Unknown]
  - Malignant neoplasm progression [Unknown]
  - Intraductal proliferative breast lesion [Unknown]
  - Blood lactate dehydrogenase increased [Unknown]
  - Weight increased [Unknown]
  - Back pain [Recovering/Resolving]
  - Platelet disorder [Unknown]
  - Blood alkaline phosphatase increased [Unknown]
  - Gastrointestinal disorder [Recovered/Resolved]
  - Anaemia [Unknown]
  - Drug interaction [Unknown]
  - Tumour marker abnormal [Recovering/Resolving]

NARRATIVE: CASE EVENT DATE: 20150101
